FAERS Safety Report 7780378-1 (Version None)
Quarter: 2011Q3

REPORT INFORMATION
  Report Type: 
  Country: None (occurrence: None)
  Receive Date: 20110922
  Receipt Date: 20110916
  Transmission Date: 20111222
  Serious: Yes (Hospitalization, Other)
  Sender: FDA-Public Use
  Company Number: CL-345-2011

PATIENT
  Age: 57 Year
  Sex: Female

DRUGS (2)
  1. CIPROFLOXACIN [Suspect]
     Indication: NEPHROLITHIASIS
  2. CIPROFLOXACIN [Suspect]
     Indication: PYELONEPHRITIS

REACTIONS (4)
  - DRUG INEFFECTIVE [None]
  - DRUG RASH WITH EOSINOPHILIA AND SYSTEMIC SYMPTOMS [None]
  - ESCHERICHIA TEST POSITIVE [None]
  - RENAL IMPAIRMENT [None]
